FAERS Safety Report 9004673 (Version 2)
Quarter: 2013Q1

REPORT INFORMATION
  Report Type: Spontaneous
  Country: GB (occurrence: None)
  Receive Date: 20121227
  Receipt Date: 20130104
  Transmission Date: 20140127
  Serious: Yes (Disabling)
  Sender: FDA-Public Use
  Company Number: AUR-APL-2012-05492

PATIENT
  Age: 62 Year
  Sex: Male
  Weight: 78 kg

DRUGS (3)
  1. SIMVASTATIN (SIMVASTATIN) [Suspect]
     Indication: PRODUCT USED FOR UNKNOWN INDICATION
     Route: 048
  2. IRBESARTAN [Suspect]
     Route: 048
     Dates: start: 20111107, end: 20121102
  3. PIZOTIFEN (PIZOTIFEN) [Concomitant]

REACTIONS (5)
  - Blood pressure decreased [None]
  - Depression [None]
  - Anxiety [None]
  - Disability [None]
  - Emotional distress [None]
